FAERS Safety Report 6766858-6 (Version None)
Quarter: 2010Q2

REPORT INFORMATION
  Report Type: 
  Country: None (occurrence: None)
  Receive Date: 20100611
  Receipt Date: 20100531
  Transmission Date: 20101027
  Serious: Yes (Life-Threatening, Disabling, Other)
  Sender: FDA-Public Use
  Company Number: BR-PFIZER INC-2010068385

PATIENT
  Age: 45 Year
  Sex: Female
  Weight: 70 kg

DRUGS (3)
  1. CHAMPIX [Suspect]
     Indication: TOBACCO USER
     Dosage: UNK
     Route: 048
     Dates: start: 20100506, end: 20100501
  2. CHAMPIX [Suspect]
     Dosage: 0.5 MG, 2X/DAY, EVERY 12 HOURS
     Route: 048
     Dates: start: 20100501, end: 20100501
  3. BUDECORT ^ASTRA^ [Concomitant]
     Indication: ASTHMA
     Dosage: UNK

REACTIONS (5)
  - AGITATION [None]
  - APPARENT DEATH [None]
  - DECREASED APPETITE [None]
  - INSOMNIA [None]
  - WEIGHT DECREASED [None]
